FAERS Safety Report 13965760 (Version 1)
Quarter: 2017Q3

REPORT INFORMATION
  Report Type: Spontaneous
  Country: GB (occurrence: GB)
  Receive Date: 20170913
  Receipt Date: 20170913
  Transmission Date: 20171128
  Serious: Yes (Life-Threatening, Hospitalization)
  Sender: FDA-Public Use
  Company Number: GB-ASTRAZENECA-2017SE92389

PATIENT
  Age: 45 Year
  Sex: Female
  Weight: 54.4 kg

DRUGS (6)
  1. ZOPICLONE [Concomitant]
     Active Substance: ZOPICLONE
  2. SERTRALINE [Suspect]
     Active Substance: SERTRALINE HYDROCHLORIDE
     Indication: DEPRESSION
     Dosage: 100.0MG UNKNOWN
     Route: 048
     Dates: start: 20160703, end: 20160709
  3. SEROQUEL [Suspect]
     Active Substance: QUETIAPINE FUMARATE
     Route: 048
  4. SERTRALINE [Suspect]
     Active Substance: SERTRALINE HYDROCHLORIDE
     Indication: DEPRESSION
     Dosage: 50.0MG UNKNOWN
     Route: 048
     Dates: start: 20160608, end: 20160702
  5. ATIVAN [Concomitant]
     Active Substance: LORAZEPAM
  6. SERTRALINE [Suspect]
     Active Substance: SERTRALINE HYDROCHLORIDE
     Indication: DEPRESSION
     Dosage: 150.0MG UNKNOWN
     Route: 048
     Dates: start: 20160710, end: 20170210

REACTIONS (3)
  - Akathisia [Recovered/Resolved]
  - Suicidal ideation [Unknown]
  - Hallucinations, mixed [Unknown]

NARRATIVE: CASE EVENT DATE: 20160609
